FAERS Safety Report 24192917 (Version 2)
Quarter: 2025Q1

REPORT INFORMATION
  Report Type: Report from Study
  Country: US (occurrence: US)
  Receive Date: 20240809
  Receipt Date: 20250324
  Transmission Date: 20250409
  Serious: Yes (Other)
  Sender: TAKEDA
  Company Number: US-TAKEDA-US202008559

PATIENT
  Age: 57 Year
  Sex: Female
  Weight: 145 kg

DRUGS (13)
  1. LANADELUMAB [Suspect]
     Active Substance: LANADELUMAB
     Indication: Hereditary angioedema
     Dosage: 300 MILLIGRAM, Q2WEEKS
     Dates: start: 20200207
  2. LANADELUMAB [Suspect]
     Active Substance: LANADELUMAB
     Indication: Immune system disorder
     Dosage: 300 MILLIGRAM, Q2WEEKS
  3. LABETALOL HYDROCHLORIDE [Concomitant]
     Active Substance: LABETALOL HYDROCHLORIDE
  4. FAMOTIDINE [Concomitant]
     Active Substance: FAMOTIDINE
  5. ACETAMINOPHEN [Concomitant]
     Active Substance: ACETAMINOPHEN
  6. EZETIMIBE [Concomitant]
     Active Substance: EZETIMIBE
  7. VITAMIN D3 [Concomitant]
     Active Substance: CHOLECALCIFEROL
  8. CINNAMON [Concomitant]
     Active Substance: CINNAMON
  9. OZEMPIC [Concomitant]
     Active Substance: SEMAGLUTIDE
  10. LEVOTHYROXINE SODIUM [Concomitant]
     Active Substance: LEVOTHYROXINE SODIUM
  11. CHLORTHALIDONE [Concomitant]
     Active Substance: CHLORTHALIDONE
  12. ICATIBANT [Concomitant]
     Active Substance: ICATIBANT ACETATE
  13. METFORMIN [Concomitant]
     Active Substance: METFORMIN HYDROCHLORIDE

REACTIONS (3)
  - Atrial fibrillation [Unknown]
  - Intentional product misuse [Unknown]
  - Nasopharyngitis [Unknown]

NARRATIVE: CASE EVENT DATE: 20200207
